FAERS Safety Report 10280619 (Version 3)
Quarter: 2014Q3

REPORT INFORMATION
  Report Type: Spontaneous
  Country: CA (occurrence: CA)
  Receive Date: 20140707
  Receipt Date: 20140715
  Transmission Date: 20150326
  Serious: Yes (Death, Hospitalization)
  Sender: FDA-Public Use
  Company Number: CA-SA-2014SA063503

PATIENT
  Sex: Female

DRUGS (4)
  1. TAXOTERE [Suspect]
     Active Substance: DOCETAXEL
     Indication: BREAST CANCER METASTATIC
     Route: 065
     Dates: start: 20140321
  2. HERCEPTIN [Suspect]
     Active Substance: TRASTUZUMAB
     Indication: BREAST CANCER METASTATIC
     Dosage: 8 MG/KG LOADING DOSE, THEN 6 MG/KG Q3W
     Route: 065
     Dates: start: 20140314
  3. TAXOTERE [Suspect]
     Active Substance: DOCETAXEL
     Indication: BREAST CANCER METASTATIC
     Route: 065
     Dates: start: 20140315
  4. PERJETA [Suspect]
     Active Substance: PERTUZUMAB
     Indication: BREAST CANCER METASTATIC
     Dosage: 840 MG INITIAL DOSE, THEN 420 MG Q3W
     Route: 065
     Dates: start: 20140516, end: 20140605

REACTIONS (7)
  - Platelet count decreased [Unknown]
  - Fatigue [Unknown]
  - Disease progression [Fatal]
  - Angioedema [Unknown]
  - Heart rate increased [Unknown]
  - Haemoglobin decreased [Unknown]
  - Neutrophil count decreased [Not Recovered/Not Resolved]

NARRATIVE: CASE EVENT DATE: 201405
